FAERS Safety Report 15927110 (Version 2)
Quarter: 2019Q1

REPORT INFORMATION
  Report Type: Spontaneous
  Country: US (occurrence: US)
  Receive Date: 20190205
  Receipt Date: 20190219
  Transmission Date: 20190417
  Serious: No
  Sender: FDA-Public Use
  Company Number: US-ALLERGAN-1850458US

PATIENT
  Age: 47 Year
  Sex: Female
  Weight: 57.14 kg

DRUGS (5)
  1. BOTOX COSMETIC [Suspect]
     Active Substance: ONABOTULINUMTOXINA
     Indication: SKIN WRINKLING
     Dosage: 5 UNITS, SINGLE
     Route: 030
     Dates: start: 201807, end: 201807
  2. SINGULAIR [Concomitant]
     Active Substance: MONTELUKAST SODIUM
     Indication: ASTHMA
     Dosage: UNK
     Route: 065
  3. BOTOX COSMETIC [Suspect]
     Active Substance: ONABOTULINUMTOXINA
     Indication: SKIN WRINKLING
     Dosage: 5 UNITS, SINGLE
     Route: 030
     Dates: start: 201805, end: 201805
  4. BOTOX COSMETIC [Suspect]
     Active Substance: ONABOTULINUMTOXINA
     Indication: SKIN WRINKLING
     Dosage: ACTUAL: 33 U TO NECK, HORIZONTAL LINE AROUND THE NECK, THE PLATYSMAL BANDS AND 5 UNITS TO GLABELLA
     Route: 030
     Dates: start: 20181004, end: 20181004
  5. BOTOX COSMETIC [Suspect]
     Active Substance: ONABOTULINUMTOXINA
     Dosage: 5 UNITS, SINGLE
     Route: 030
     Dates: start: 201803, end: 201803

REACTIONS (16)
  - Influenza like illness [Recovered/Resolved]
  - Drug ineffective [Unknown]
  - Tinnitus [Not Recovered/Not Resolved]
  - Nausea [Recovered/Resolved]
  - Obstructive airways disorder [Not Recovered/Not Resolved]
  - Panic attack [Not Recovered/Not Resolved]
  - Palpitations [Unknown]
  - Off label use [Unknown]
  - Heart rate increased [Unknown]
  - Anxiety [Not Recovered/Not Resolved]
  - Discomfort [Not Recovered/Not Resolved]
  - Joint stiffness [Not Recovered/Not Resolved]
  - Flushing [Recovered/Resolved]
  - Chills [Recovered/Resolved]
  - Ear discomfort [Not Recovered/Not Resolved]
  - Dysphagia [Not Recovered/Not Resolved]

NARRATIVE: CASE EVENT DATE: 201803
